FAERS Safety Report 9741415 (Version 4)
Quarter: 2014Q1

REPORT INFORMATION
  Report Type: Spontaneous
  Country: JP (occurrence: JP)
  Receive Date: 20131209
  Receipt Date: 20140225
  Transmission Date: 20141002
  Serious: Yes (Hospitalization, Other)
  Sender: FDA-Public Use
  Company Number: PHHY2013JP142597

PATIENT
  Age: 78 Year
  Sex: Male
  Weight: 57 kg

DRUGS (8)
  1. ZOMETA [Suspect]
     Indication: METASTASES TO BONE
     Dosage: 4 MG, EVERY 4 WEEKS
     Route: 042
     Dates: start: 20090406, end: 20120220
  2. LEUPLIN [Concomitant]
     Indication: METASTASES TO BONE
     Route: 058
     Dates: start: 20090508, end: 20120319
  3. ZOLADEX [Concomitant]
     Indication: METASTASES TO BONE
     Dosage: 3.6 MG, UNK
     Dates: start: 20090407, end: 20090422
  4. CASODEX [Concomitant]
     Indication: METASTASES TO BONE
     Dosage: 80 MG, UNK
     Route: 048
     Dates: start: 20090407, end: 20100312
  5. OXYCONTIN [Concomitant]
     Indication: METASTASES TO BONE
     Dosage: 10 MG, UNK
     Route: 048
     Dates: start: 20090422, end: 20100902
  6. LANTUS [Concomitant]
     Indication: TYPE 2 DIABETES MELLITUS
     Dosage: 100 IU, UNK
     Route: 058
     Dates: start: 2010
  7. AMARYL [Concomitant]
     Indication: TYPE 2 DIABETES MELLITUS
     Dosage: 2 MG, UNK
     Route: 048
     Dates: start: 2010
  8. GLACTIV [Concomitant]
     Indication: TYPE 2 DIABETES MELLITUS
     Dosage: 50 MG, UNK
     Route: 048
     Dates: start: 20130311

REACTIONS (15)
  - Osteonecrosis of jaw [Recovering/Resolving]
  - Osteomyelitis [Recovering/Resolving]
  - Sinusitis [Recovering/Resolving]
  - Haemorrhage [Recovering/Resolving]
  - Swelling [Recovering/Resolving]
  - Periodontitis [Recovering/Resolving]
  - Mouth ulceration [Recovering/Resolving]
  - Gingival swelling [Unknown]
  - Gingival erythema [Recovering/Resolving]
  - Gingivitis [Recovering/Resolving]
  - Pain in jaw [Recovering/Resolving]
  - Exposed bone in jaw [Recovering/Resolving]
  - Lymphadenopathy [Recovering/Resolving]
  - Lymph node pain [Recovering/Resolving]
  - Oral disorder [Recovering/Resolving]
